FAERS Safety Report 10248273 (Version 1)
Quarter: 2014Q2

REPORT INFORMATION
  Report Type: Spontaneous
  Country: DE (occurrence: DE)
  Receive Date: 20140620
  Receipt Date: 20140620
  Transmission Date: 20141212
  Serious: Yes (Hospitalization)
  Sender: FDA-Public Use
  Company Number: DE-UCBSA-2014002074

PATIENT
  Age: 2 Year
  Sex: Male

DRUGS (1)
  1. KEPPRA [Suspect]
     Indication: MUSCLE SPASMS
     Dosage: UNK

REACTIONS (4)
  - Sluggishness [Unknown]
  - General physical health deterioration [Unknown]
  - Nausea [Unknown]
  - Eating disorder [Unknown]
